FAERS Safety Report 19099772 (Version 2)
Quarter: 2021Q2

REPORT INFORMATION
  Report Type: Report from Study
  Country: CA (occurrence: CA)
  Receive Date: 20210407
  Receipt Date: 20210517
  Transmission Date: 20210717
  Serious: Yes (Other)
  Sender: FDA-Public Use
  Company Number: CA-BIOGEN-2021BI00998434

PATIENT
  Age: 73 Year
  Sex: Male

DRUGS (1)
  1. FAMPYRA [Suspect]
     Active Substance: DALFAMPRIDINE
     Indication: MULTIPLE SCLEROSIS
     Route: 048
     Dates: start: 20120725

REACTIONS (3)
  - Pneumonia [Unknown]
  - Prostatic specific antigen increased [Unknown]
  - Bladder cancer [Unknown]

NARRATIVE: CASE EVENT DATE: 2020
